FAERS Safety Report 5662709-1 (Version None)
Quarter: 2008Q1

REPORT INFORMATION
  Report Type: 
  Country: None (occurrence: None)
  Receive Date: 20080313
  Receipt Date: 20080311
  Transmission Date: 20080703
  Serious: Yes (Other)
  Sender: FDA-Public Use
  Company Number: PT-BRISTOL-MYERS SQUIBB COMPANY-14094833

PATIENT
  Age: 50 Year
  Sex: Male

DRUGS (6)
  1. ABILIFY [Suspect]
     Dates: start: 20050801
  2. LORAZEPAM [Concomitant]
  3. RISPERIDONE [Concomitant]
     Indication: SCHIZOPHRENIA, PARANOID TYPE
  4. CYAMEMAZINE [Concomitant]
     Indication: SCHIZOPHRENIA, PARANOID TYPE
  5. FLURAZEPAM [Concomitant]
     Indication: SCHIZOPHRENIA, PARANOID TYPE
  6. DIAZEPAM [Concomitant]
     Indication: SCHIZOPHRENIA, PARANOID TYPE

REACTIONS (2)
  - AGITATION [None]
  - PSYCHOTIC DISORDER [None]
